FAERS Safety Report 6950068-3 (Version None)
Quarter: 2010Q3

REPORT INFORMATION
  Report Type: 
  Country: None (occurrence: None)
  Receive Date: 20100828
  Receipt Date: 20100126
  Transmission Date: 20110219
  Serious: No
  Sender: FDA-Public Use
  Company Number: US-ABBOTT-10P-163-0623091-00

PATIENT

DRUGS (2)
  1. NIASPAN [Suspect]
     Indication: PRODUCT USED FOR UNKNOWN INDICATION
     Dosage: TWICE THE ORIGINAL DOSE
  2. NIASPAN [Suspect]
     Dosage: UNKNOWN

REACTIONS (3)
  - GOUT [None]
  - HIGH DENSITY LIPOPROTEIN ABNORMAL [None]
  - PAIN IN EXTREMITY [None]
